FAERS Safety Report 26030632 (Version 2)
Quarter: 2025Q4

REPORT INFORMATION
  Report Type: Spontaneous
  Country: US (occurrence: US)
  Receive Date: 20251112
  Receipt Date: 20251229
  Transmission Date: 20260118
  Serious: No
  Sender: TOLMAR
  Company Number: US-Tolmar-TLM-2025-08285

PATIENT

DRUGS (3)
  1. ELIGARD [Suspect]
     Active Substance: LEUPROLIDE ACETATE
     Indication: Prostate cancer
     Dosage: BOX: 15489CUS/ 3-2027?SYRINGE A: 15489AUS/ 4-2027?SYRINGE B: 15489BUS/ 3-2027?SN 6617821424666?GTIN
  2. ELIGARD [Suspect]
     Active Substance: LEUPROLIDE ACETATE
     Dosage: REPLACEMENT DOSE GIVEN
  3. DEVICE [Suspect]
     Active Substance: DEVICE
     Indication: Prostate cancer
     Dosage: BOX: 15489CUS/ 3-2027?SYRINGE A: 15489AUS/ 4-2027?SYRINGE B: 15489BUS/ 3-2027?SN 6617821424666?GTIN

REACTIONS (4)
  - Intercepted product preparation error [Unknown]
  - Device leakage [Unknown]
  - Device connection issue [Unknown]
  - Wrong technique in product usage process [Unknown]
